FAERS Safety Report 10183378 (Version 3)
Quarter: 2014Q2

REPORT INFORMATION
  Report Type: Report from Study
  Country: US (occurrence: US)
  Receive Date: 20140520
  Receipt Date: 20140630
  Transmission Date: 20141212
  Serious: Yes (Hospitalization)
  Sender: FDA-Public Use
  Company Number: US-SA-2014SA063145

PATIENT
  Age: 44 Year
  Sex: Female
  Weight: 140 kg

DRUGS (6)
  1. AUBAGIO [Suspect]
     Indication: MULTIPLE SCLEROSIS
     Route: 048
     Dates: start: 20130403, end: 20140403
  2. PREMARIN [Concomitant]
     Indication: HORMONE THERAPY
     Dosage: 675 1 PER DAY
  3. LEVOTHYROXINE [Concomitant]
     Indication: HYPOTHYROIDISM
     Dosage: 100 1 PER DAY
  4. NEURONTIN [Concomitant]
     Indication: PARAESTHESIA
     Dosage: 3 X PER DAY
  5. PAMELOR [Concomitant]
     Indication: HEADACHE
     Dosage: 50 1 PER DAY
  6. BACLOFEN [Concomitant]
     Indication: MUSCLE SPASTICITY
     Dosage: 10 3XDAY

REACTIONS (6)
  - Hypersensitivity [Recovered/Resolved]
  - Multiple sclerosis relapse [Recovered/Resolved]
  - Abdominal discomfort [Recovered/Resolved]
  - Asthenia [Recovered/Resolved]
  - Abasia [Recovered/Resolved]
  - Speech disorder [Recovered/Resolved]
